FAERS Safety Report 22297413 (Version 1)
Quarter: 2023Q2

REPORT INFORMATION
  Report Type: Spontaneous
  Country: FR (occurrence: FR)
  Receive Date: 20230509
  Receipt Date: 20230509
  Transmission Date: 20230721
  Serious: Yes (Hospitalization)
  Sender: FDA-Public Use
  Company Number: None

PATIENT
  Age: 75 Year
  Sex: Female
  Weight: 51 kg

DRUGS (13)
  1. HYDROXYUREA [Suspect]
     Active Substance: HYDROXYUREA
     Indication: Thrombocytosis
     Dosage: 1 FP?DAILY DOSE: 1 GRAM
     Route: 048
     Dates: start: 20230214, end: 20230405
  2. KAYEXALATE [Suspect]
     Active Substance: SODIUM POLYSTYRENE SULFONATE
     Indication: Hyperkalaemia
     Route: 048
     Dates: end: 20230405
  3. CRESTOR [Concomitant]
     Active Substance: ROSUVASTATIN CALCIUM
     Dosage: 0-0-1?DAILY DOSE: 5 MILLIGRAM
  4. KARDEGIC [Concomitant]
     Active Substance: ASPIRIN DL-LYSINE
     Dosage: 0-1-0?DAILY DOSE: 75 GRAM
  5. NICARDIPINE HYDROCHLORIDE [Concomitant]
     Active Substance: NICARDIPINE HYDROCHLORIDE
     Dosage: 1-0-1?DAILY DOSE: 100 MILLIGRAM
  6. ESOMEPRAZOLE [Concomitant]
     Active Substance: ESOMEPRAZOLE
     Dosage: 0-0-1?DAILY DOSE: 20 MILLIGRAM
  7. DAFALGAN [Concomitant]
     Active Substance: ACETAMINOPHEN
     Dosage: 1-1-1?DAILY DOSE: 3 GRAM
  8. KAYEXALATE [Concomitant]
     Active Substance: SODIUM POLYSTYRENE SULFONATE
     Dosage: 454G 1. 5 SPOONS PER DAY
  9. CHOLECALCIFEROL [Concomitant]
     Active Substance: CHOLECALCIFEROL
     Dosage: 50,000 IU 1 AMPOULE PER MONTH
  10. ATENOLOL [Concomitant]
     Active Substance: ATENOLOL
     Dosage: 1-0-0?DAILY DOSE: 50 MILLIGRAM
  11. FERROUS SULFATE [Concomitant]
     Active Substance: FERROUS SULFATE
     Dosage: 1-0-0?DAILY DOSE: 80 MILLIGRAM
  12. DICLOFENAC [Concomitant]
     Active Substance: DICLOFENAC
     Dosage: 1-1-1
  13. LIDOCAINE [Concomitant]
     Active Substance: LIDOCAINE
     Dosage: 700 MG PLASTER 1/D FOR 12H

REACTIONS (4)
  - Hypomagnesaemia [Recovered/Resolved]
  - Hypocalcaemia [Recovered/Resolved]
  - Pancytopenia [Recovering/Resolving]
  - Hypokalaemia [Recovered/Resolved]

NARRATIVE: CASE EVENT DATE: 20230313
